FAERS Safety Report 4563975-6 (Version None)
Quarter: 2005Q1

REPORT INFORMATION
  Report Type: 
  Country: None (occurrence: None)
  Receive Date: 20050121
  Receipt Date: 20050110
  Transmission Date: 20050727
  Serious: Yes (Hospitalization)
  Sender: FDA-Public Use
  Company Number: 2005011151

PATIENT
  Age: 35 Year
  Sex: Male

DRUGS (2)
  1. OXYTETRACYCLINE [Suspect]
     Indication: LOWER RESPIRATORY TRACT INFECTION
  2. NEVIRAPINE [Suspect]
     Indication: HIV INFECTION
     Dosage: 200 MG

REACTIONS (2)
  - BRONCHOSPASM [None]
  - RASH [None]
